FAERS Safety Report 9242477 (Version 2)
Quarter: 2013Q2

REPORT INFORMATION
  Report Type: Spontaneous
  Country: BR (occurrence: BR)
  Receive Date: 20130419
  Receipt Date: 20130429
  Transmission Date: 20140414
  Serious: Yes (Other)
  Sender: FDA-Public Use
  Company Number: BR-JNJFOC-20130315583

PATIENT
  Age: 70 Year
  Sex: Female

DRUGS (4)
  1. TYLENOL 500 [Suspect]
     Indication: HEADACHE
     Route: 048
     Dates: start: 20130315, end: 20130319
  2. ADVIL [Suspect]
     Indication: HEADACHE
     Route: 048
     Dates: start: 201303, end: 2013
  3. DONEPEZIL [Suspect]
     Indication: PRODUCT USED FOR UNKNOWN INDICATION
     Route: 065
     Dates: end: 2013
  4. DONEPEZIL [Suspect]
     Indication: PRODUCT USED FOR UNKNOWN INDICATION
     Route: 065

REACTIONS (5)
  - Kidney infection [Not Recovered/Not Resolved]
  - Overdose [Recovered/Resolved]
  - Blood creatine increased [Not Recovered/Not Resolved]
  - Urinary tract infection [Unknown]
  - Headache [Unknown]
